FAERS Safety Report 7628915-1 (Version None)
Quarter: 2011Q3

REPORT INFORMATION
  Report Type: 
  Country: None (occurrence: None)
  Receive Date: 20110722
  Receipt Date: 20110718
  Transmission Date: 20111222
  Serious: Yes (Death, Hospitalization)
  Sender: FDA-Public Use
  Company Number: DK-PFIZER INC-2011161704

PATIENT
  Age: 49 Year
  Sex: Male
  Weight: 68 kg

DRUGS (1)
  1. SUNITINIB MALATE [Suspect]
     Indication: RENAL CANCER
     Dosage: 50 MG, UNK
     Dates: start: 20090715, end: 20090804

REACTIONS (3)
  - RENAL CANCER [None]
  - RENAL FAILURE [None]
  - DISEASE PROGRESSION [None]
